FAERS Safety Report 5099434-4 (Version None)
Quarter: 2006Q3

REPORT INFORMATION
  Report Type: 
  Country: None (occurrence: None)
  Receive Date: 20060905
  Receipt Date: 20060905
  Transmission Date: 20061208
  Serious: Yes (Hospitalization)
  Sender: FDA-Public Use
  Company Number: None

PATIENT
  Age: 90 Year
  Sex: Female
  Weight: 53.0709 kg

DRUGS (1)
  1. METHOTREXATE [Suspect]
     Indication: CARDIAC FAILURE CONGESTIVE
     Dosage: 10 MG (4X 2.5 MG TAB) ONCE DAILY PO
     Route: 048
     Dates: start: 20060819

REACTIONS (9)
  - COUGH [None]
  - DIARRHOEA [None]
  - DRUG DISPENSING ERROR [None]
  - DYSPNOEA [None]
  - MALAISE [None]
  - PHARYNGOLARYNGEAL PAIN [None]
  - RASH [None]
  - STOMATITIS [None]
  - WRONG DRUG ADMINISTERED [None]
